FAERS Safety Report 20792921 (Version 1)
Quarter: 2022Q2

REPORT INFORMATION
  Report Type: Spontaneous
  Country: US (occurrence: US)
  Receive Date: 20220506
  Receipt Date: 20220506
  Transmission Date: 20220720
  Serious: No
  Sender: FDA-Public Use
  Company Number: US-UCBSA-2021031250

PATIENT
  Sex: Male

DRUGS (1)
  1. CIMZIA [Suspect]
     Active Substance: CERTOLIZUMAB PEGOL
     Indication: Psoriasis
     Dosage: 400 MILLIGRAM, EV 3 WEEKS
     Route: 058
     Dates: start: 20200812, end: 2021

REACTIONS (3)
  - Blood glucose increased [Unknown]
  - Blood creatinine increased [Unknown]
  - Product use issue [Unknown]
